FAERS Safety Report 23183058 (Version 6)
Quarter: 2025Q3

REPORT INFORMATION
  Report Type: Spontaneous
  Country: US (occurrence: US)
  Receive Date: 20231114
  Receipt Date: 20250724
  Transmission Date: 20251020
  Serious: No
  Sender: SANOFI AVENTIS
  Company Number: US-SA-SAC20231107000448

PATIENT
  Age: 58 Year
  Sex: Female

DRUGS (34)
  1. DUPIXENT [Suspect]
     Active Substance: DUPILUMAB
     Indication: Dermatitis atopic
     Dosage: 300 MG, QOW
     Route: 058
     Dates: start: 20230818
  2. ADVAIR HFA [Concomitant]
     Active Substance: FLUTICASONE PROPIONATE\SALMETEROL XINAFOATE
  3. AZITHROMYCIN [Concomitant]
     Active Substance: AZITHROMYCIN
  4. CEFDINIR [Concomitant]
     Active Substance: CEFDINIR
  5. CLOBETASOL [Concomitant]
     Active Substance: CLOBETASOL
  6. ELIDEL [Concomitant]
     Active Substance: PIMECROLIMUS
  7. EUCRISA [Concomitant]
     Active Substance: CRISABOROLE
  8. FLUCONAZOLE [Concomitant]
     Active Substance: FLUCONAZOLE
  9. FLUOCINONIDE [Concomitant]
     Active Substance: FLUOCINONIDE
  10. JUBLIA [Concomitant]
     Active Substance: EFINACONAZOLE
  11. LEVOFLOXACIN [Concomitant]
     Active Substance: LEVOFLOXACIN
  12. PREDNISONE [Concomitant]
     Active Substance: PREDNISONE
  13. SUTAB [Concomitant]
     Active Substance: MAGNESIUM SULFATE\POTASSIUM CHLORIDE\SODIUM SULFATE
  14. TACROLIMUS [Concomitant]
     Active Substance: TACROLIMUS
  15. TIROSINT [Concomitant]
     Active Substance: LEVOTHYROXINE SODIUM
  16. TRELEGY ELLIPTA [Concomitant]
     Active Substance: FLUTICASONE FUROATE\UMECLIDINIUM BROMIDE\VILANTEROL TRIFENATATE
  17. VENTOLIN HFA [Concomitant]
     Active Substance: ALBUTEROL SULFATE
  18. XIFAXAN [Concomitant]
     Active Substance: RIFAXIMIN
  19. ZOLPIDEM [Concomitant]
     Active Substance: ZOLPIDEM TARTRATE
  20. ALBUTEROL SULFATE [Concomitant]
     Active Substance: ALBUTEROL SULFATE
  21. DIAZEPAM [Concomitant]
     Active Substance: DIAZEPAM
  22. MINOXIDIL [Concomitant]
     Active Substance: MINOXIDIL
  23. MOUNJARO [Concomitant]
     Active Substance: TIRZEPATIDE
  24. ALBUTEROL [Concomitant]
     Active Substance: ALBUTEROL
  25. ACETAMINOPHEN\HYDROCODONE [Concomitant]
     Active Substance: ACETAMINOPHEN\HYDROCODONE
  26. NALTREXONE [Concomitant]
     Active Substance: NALTREXONE
  27. VALACYCLOVIR [Concomitant]
     Active Substance: VALACYCLOVIR HYDROCHLORIDE
  28. PREDNISOLONE SODIUM PHOSPHATE [Concomitant]
     Active Substance: PREDNISOLONE SODIUM PHOSPHATE
  29. FLUTICASONE PROPIONATE\SALMETEROL XINAFOATE [Concomitant]
     Active Substance: FLUTICASONE PROPIONATE\SALMETEROL XINAFOATE
  30. VALACYCLOVIR [Concomitant]
     Active Substance: VALACYCLOVIR HYDROCHLORIDE
  31. EPINEPHRINE [Concomitant]
     Active Substance: EPINEPHRINE
  32. PREDNISONE [Concomitant]
     Active Substance: PREDNISONE
  33. PREDNISONE [Concomitant]
     Active Substance: PREDNISONE
  34. TIROSINT [Concomitant]
     Active Substance: LEVOTHYROXINE SODIUM

REACTIONS (7)
  - Infection [Unknown]
  - Discomfort [Unknown]
  - Impaired quality of life [Unknown]
  - Oral herpes [Unknown]
  - Rash [Unknown]
  - Dermatitis atopic [Unknown]
  - Drug ineffective [Unknown]
